FAERS Safety Report 5236711-8 (Version None)
Quarter: 2007Q1

REPORT INFORMATION
  Report Type: 
  Country: None (occurrence: None)
  Receive Date: 20070213
  Receipt Date: 20070202
  Transmission Date: 20070707
  Serious: Yes (Hospitalization, Disabling)
  Sender: FDA-Public Use
  Company Number: PHRM2005FR02388

PATIENT
  Age: 74 Year
  Sex: Female

DRUGS (1)
  1. AREDIA [Suspect]
     Indication: RHEUMATOID ARTHRITIS
     Dosage: 90 MG, QMO
     Route: 042
     Dates: start: 20020701, end: 20050515

REACTIONS (5)
  - ABSCESS DRAINAGE [None]
  - ABSCESS JAW [None]
  - FISTULA [None]
  - OSTEONECROSIS [None]
  - TOOTH EXTRACTION [None]
